FAERS Safety Report 7362396-0 (Version None)
Quarter: 2011Q1

REPORT INFORMATION
  Report Type: 
  Country: None (occurrence: None)
  Receive Date: 20110318
  Receipt Date: 20110310
  Transmission Date: 20110831
  Serious: Yes (Other)
  Sender: FDA-Public Use
  Company Number: US-AMGEN-USASP2011013621

PATIENT
  Age: 59 Year
  Sex: Female

DRUGS (4)
  1. LORTAB [Concomitant]
  2. ENBREL [Suspect]
     Indication: RHEUMATOID ARTHRITIS
  3. FOLIC ACID [Concomitant]
  4. METHOTREXATE [Concomitant]

REACTIONS (3)
  - GASTROINTESTINAL HYPOMOTILITY [None]
  - PERONEAL NERVE PALSY [None]
  - OESOPHAGEAL ACHALASIA [None]
